FAERS Safety Report 6878264-4 (Version None)
Quarter: 2010Q3

REPORT INFORMATION
  Report Type: 
  Country: None (occurrence: None)
  Receive Date: 20100728
  Receipt Date: 20100717
  Transmission Date: 20110219
  Serious: Yes (Hospitalization, Other)
  Sender: FDA-Public Use
  Company Number: JP-PFIZER INC-2010086694

PATIENT
  Age: 59 Year
  Sex: Male
  Weight: 57.1 kg

DRUGS (11)
  1. SUNITINIB MALATE [Suspect]
     Indication: RENAL CELL CARCINOMA
     Dosage: 50 MG, 1X/DAY
     Dates: start: 20080909, end: 20090202
  2. ETIZOLAM [Concomitant]
     Dosage: 0.5 MG, 2X/DAY
     Route: 048
  3. BALANCE [Concomitant]
     Dosage: 0.5 MG, 2X/DAY
     Route: 048
  4. BUFFERIN [Concomitant]
     Indication: CEREBRAL INFARCTION
     Dosage: 81 MG, 1X/DAY
     Route: 048
  5. HARNAL [Concomitant]
     Indication: BENIGN PROSTATIC HYPERPLASIA
     Dosage: 0.2 MG, 1X/DAY
     Route: 048
  6. BUP-4 [Concomitant]
     Indication: HYPERTONIC BLADDER
     Dosage: 20 MG/DAY
     Route: 048
  7. AMLODIPINE BESYLATE [Concomitant]
     Indication: HYPERTENSION
     Dosage: 5 MG, 1X/DAY
     Route: 048
  8. TANATRIL ^TANABE^ [Concomitant]
     Indication: HYPERTENSION
     Dosage: 5 MG, 1X/DAY
     Route: 048
  9. DEPAS [Concomitant]
     Dosage: 0.5 MG, 2X/DAY
     Route: 048
     Dates: start: 20081107
  10. TAKEPRON [Concomitant]
     Dosage: 15 MG, 1X/DAY
     Route: 048
     Dates: start: 20090105
  11. ALLOID [Concomitant]
     Dosage: 60 ML, 3X/DAY
     Route: 048
     Dates: start: 20090107, end: 20090113

REACTIONS (3)
  - DECREASED APPETITE [None]
  - MALAISE [None]
  - MYXOEDEMA [None]
